FAERS Safety Report 25464996 (Version 1)
Quarter: 2025Q2

REPORT INFORMATION
  Report Type: Spontaneous
  Country: US (occurrence: US)
  Receive Date: 20250622
  Receipt Date: 20250622
  Transmission Date: 20250717
  Serious: No
  Sender: ROCHE
  Company Number: US-ROCHE-10000313128

PATIENT
  Sex: Male

DRUGS (1)
  1. EVRYSDI [Suspect]
     Active Substance: RISDIPLAM
     Indication: Muscle atrophy
     Route: 048

REACTIONS (2)
  - Product administration error [Unknown]
  - No adverse event [Unknown]
